FAERS Safety Report 9869735 (Version 2)
Quarter: 2014Q1

REPORT INFORMATION
  Report Type: Report from Study
  Country: CN (occurrence: CN)
  Receive Date: 20140205
  Receipt Date: 20140318
  Transmission Date: 20141002
  Serious: Yes (Hospitalization)
  Sender: FDA-Public Use
  Company Number: CN-ASTELLAS-2014US001081

PATIENT
  Age: 43 Year
  Sex: Male

DRUGS (1)
  1. ERLOTINIB TABLET [Suspect]
     Indication: NON-SMALL CELL LUNG CANCER
     Dosage: 150 MG, UID/QD
     Route: 048
     Dates: start: 20130605

REACTIONS (10)
  - Intervertebral disc protrusion [Unknown]
  - Blood pressure decreased [Recovered/Resolved]
  - Hepatic function abnormal [Unknown]
  - Cough [Unknown]
  - Diarrhoea [Unknown]
  - Gait disturbance [Not Recovered/Not Resolved]
  - Vomiting [Recovered/Resolved]
  - Malaise [Unknown]
  - Asthenia [Not Recovered/Not Resolved]
  - Hyperhidrosis [Unknown]
